FAERS Safety Report 13141860 (Version 4)
Quarter: 2017Q2

REPORT INFORMATION
  Report Type: Spontaneous
  Country: US (occurrence: US)
  Receive Date: 20170123
  Receipt Date: 20170418
  Transmission Date: 20170830
  Serious: Yes (Death, Hospitalization)
  Sender: FDA-Public Use
  Company Number: US-ELI_LILLY_AND_COMPANY-US201701007100

PATIENT
  Age: 66 Year
  Sex: Female
  Weight: 80.2 kg

DRUGS (2)
  1. FORTEO [Suspect]
     Active Substance: TERIPARATIDE
     Indication: FRACTURE
  2. FORTEO [Suspect]
     Active Substance: TERIPARATIDE
     Indication: OSTEOPOROSIS
     Dosage: 20 UG, QD
     Route: 065
     Dates: start: 20151104

REACTIONS (4)
  - Synovial sarcoma [Unknown]
  - Metastases to lung [Unknown]
  - Metastatic neoplasm [Fatal]
  - Arthralgia [Unknown]

NARRATIVE: CASE EVENT DATE: 20161212
